FAERS Safety Report 21646405 (Version 3)
Quarter: 2023Q1

REPORT INFORMATION
  Report Type: Report from Study
  Country: BR (occurrence: BR)
  Receive Date: 20221126
  Receipt Date: 20230125
  Transmission Date: 20230417
  Serious: Yes (Other)
  Sender: FDA-Public Use
  Company Number: BR-TAKEDA-2022TUS086998

PATIENT
  Age: 56 Year
  Sex: Male
  Weight: 113.3 kg

DRUGS (6)
  1. MARIBAVIR [Suspect]
     Active Substance: MARIBAVIR
     Indication: Cytomegalovirus infection
     Dosage: 400 MILLIGRAM, BID
     Route: 065
     Dates: start: 20221110
  2. TACROLIMUS [Concomitant]
     Active Substance: TACROLIMUS
  3. GANCICLOVIR [Concomitant]
     Active Substance: GANCICLOVIR
     Dosage: UNK
     Dates: start: 20221003, end: 20221110
  4. SOLU-MEDROL [Concomitant]
     Active Substance: METHYLPREDNISOLONE SODIUM SUCCINATE
     Dosage: 1 GRAM
     Route: 065
     Dates: start: 20221011, end: 20221013
  5. MEROPENEM [Concomitant]
     Active Substance: MEROPENEM
     Indication: Vascular device infection
     Dosage: UNK
     Route: 065
     Dates: start: 20221111
  6. TEICO [Concomitant]
     Indication: Vascular device infection
     Dosage: UNK
     Route: 065
     Dates: start: 20221111

REACTIONS (9)
  - Vascular device infection [Unknown]
  - Nausea [Unknown]
  - Diarrhoea [Recovered/Resolved]
  - Viraemia [Unknown]
  - Drug resistance [Unknown]
  - Chills [Recovered/Resolved]
  - Vomiting [Recovered/Resolved]
  - Immunosuppressant drug level increased [Unknown]
  - Inappropriate schedule of product administration [Unknown]

NARRATIVE: CASE EVENT DATE: 20221110
